FAERS Safety Report 19962658 (Version 1)
Quarter: 2021Q4

REPORT INFORMATION
  Report Type: Spontaneous
  Country: None (occurrence: US)
  Receive Date: 20211018
  Receipt Date: 20211018
  Transmission Date: 20220303
  Serious: Yes (Hospitalization)
  Sender: FDA-Public Use
  Company Number: US-ROCHE-2929517

PATIENT
  Sex: Female

DRUGS (10)
  1. GANCICLOVIR [Suspect]
     Active Substance: GANCICLOVIR
     Indication: Product used for unknown indication
     Dosage: UNK
     Route: 065
  2. VALCYTE [Suspect]
     Active Substance: VALGANCICLOVIR HYDROCHLORIDE
     Indication: Cytomegalovirus infection
     Dosage: STARTED VALGAN 900MG BID 10/4 AND PT TOLERATING WELL^ 900 MG BID FOR 14 DAYS (84 TABS) THEN 900 M...
     Route: 048
  3. VALCYTE [Suspect]
     Active Substance: VALGANCICLOVIR HYDROCHLORIDE
     Indication: Immunodeficiency
     Dosage: STARTED VALGAN 900MG BID 10/4 AND PT TOLERATING WELL^ 900 MG BID FOR 14 DAYS (84 TABS) THEN 900 M...
     Route: 048
  4. VALCYTE [Suspect]
     Active Substance: VALGANCICLOVIR HYDROCHLORIDE
     Indication: Chronic myeloid leukaemia
     Dosage: STARTED VALGAN 900MG BID 10/4 AND PT TOLERATING WELL^ 900 MG BID FOR 14 DAYS (84 TABS) THEN 900 M...
     Route: 048
  5. VALCYTE [Suspect]
     Active Substance: VALGANCICLOVIR HYDROCHLORIDE
     Indication: Cytomegalovirus infection
     Dosage: UNK
     Route: 048
  6. VALCYTE [Suspect]
     Active Substance: VALGANCICLOVIR HYDROCHLORIDE
     Indication: Immunodeficiency
     Dosage: UNK
     Route: 048
  7. VALCYTE [Suspect]
     Active Substance: VALGANCICLOVIR HYDROCHLORIDE
     Indication: Chronic myeloid leukaemia
     Dosage: UNK
     Route: 048
  8. VALCYTE [Suspect]
     Active Substance: VALGANCICLOVIR HYDROCHLORIDE
     Indication: Cytomegalovirus infection
     Dosage: UNK
     Route: 048
  9. VALCYTE [Suspect]
     Active Substance: VALGANCICLOVIR HYDROCHLORIDE
     Indication: Immunodeficiency
     Dosage: UNK
     Route: 048
  10. VALCYTE [Suspect]
     Active Substance: VALGANCICLOVIR HYDROCHLORIDE
     Indication: Chronic myeloid leukaemia
     Dosage: UNK
     Route: 048

REACTIONS (5)
  - Pyrexia [Recovering/Resolving]
  - Liver function test increased [Unknown]
  - Transaminases increased [Unknown]
  - Thrombocytopenia [Unknown]
  - Colitis [Unknown]
